FAERS Safety Report 4999326-2 (Version None)
Quarter: 2006Q2

REPORT INFORMATION
  Report Type: 
  Country: None (occurrence: None)
  Receive Date: 20060509
  Receipt Date: 20060501
  Transmission Date: 20061013
  Serious: Yes (Other)
  Sender: FDA-Public Use
  Company Number: CIP06000971

PATIENT
  Age: 76 Year
  Sex: Female

DRUGS (1)
  1. DIDRONEL [Suspect]
     Indication: OSTEOPOROSIS
     Dosage: 400 MG DAILY FOR 2 WEEKS EVERY 3 MONTHS, ORAL
     Route: 048
     Dates: start: 19990101

REACTIONS (1)
  - PULMONARY FIBROSIS [None]
